FAERS Safety Report 5911720-1 (Version None)
Quarter: 2008Q4

REPORT INFORMATION
  Report Type: 
  Country: None (occurrence: None)
  Receive Date: 20081008
  Receipt Date: 20080929
  Transmission Date: 20090506
  Serious: Yes (Hospitalization, Other)
  Sender: FDA-Public Use
  Company Number: JP-RANBAXY-2008RR-18253

PATIENT
  Age: 85 Year
  Sex: Female

DRUGS (3)
  1. FUROSEMIDE [Suspect]
  2. GLYCYRRHIZIN [Suspect]
     Dosage: 80 MG, QD
     Route: 048
  3. POTASSIUM CHLORIDE [Concomitant]

REACTIONS (2)
  - BLOOD CREATINE PHOSPHOKINASE INCREASED [None]
  - HYPOKALAEMIA [None]
